FAERS Safety Report 13385680 (Version 2)
Quarter: 2017Q2

REPORT INFORMATION
  Report Type: Report from Study
  Country: DE (occurrence: DE)
  Receive Date: 20170330
  Receipt Date: 20170405
  Transmission Date: 20170830
  Serious: Yes (Hospitalization, Other)
  Sender: FDA-Public Use
  Company Number: DE-ROCHE-1809944

PATIENT
  Age: 70 Year
  Sex: Female
  Weight: 70 kg

DRUGS (4)
  1. PIXANTRONE [Suspect]
     Active Substance: PIXANTRONE
     Dosage: REDUCED DOSE 68.4 MG/INFUSION
     Route: 042
     Dates: start: 20161005
  2. OBINUTUZUMAB [Suspect]
     Active Substance: OBINUTUZUMAB
     Indication: DIFFUSE LARGE B-CELL LYMPHOMA
     Dosage: ON 07/SEP/2016, RECEIVED MOST RECENT INFUSION (1000 MG)?ON 27/JUL/2016, RECEIVED MOST RECENT INFUSIO
     Route: 042
     Dates: start: 20160713
  3. PIXANTRONE [Suspect]
     Active Substance: PIXANTRONE
     Dosage: AT REDUCED DOSE 57.72 MG/INFUSION
     Route: 042
     Dates: start: 20161116
  4. PIXANTRONE [Suspect]
     Active Substance: PIXANTRONE
     Indication: B-CELL LYMPHOMA
     Dosage: ON 14/SEP/2016, RECEIVED MOST RECENT INFUSION (86 MG)?ON 27/JUL/2016, RECEIVED MOST RECENT INFUSION
     Route: 042
     Dates: start: 20160713

REACTIONS (3)
  - Leukopenia [Recovered/Resolved]
  - Neutropenia [Recovered/Resolved]
  - Febrile neutropenia [Recovered/Resolved]

NARRATIVE: CASE EVENT DATE: 20160727
